FAERS Safety Report 9656241 (Version 2)
Quarter: 2013Q4

REPORT INFORMATION
  Report Type: Report from Study
  Country: US (occurrence: US)
  Receive Date: 20131030
  Receipt Date: 20131030
  Transmission Date: 20140711
  Serious: No
  Sender: FDA-Public Use
  Company Number: US-TEVA-435625USA

PATIENT
  Age: 16 Year
  Sex: Male

DRUGS (3)
  1. CLARAVIS [Suspect]
     Dosage: 40 MILLIGRAM DAILY;
  2. FISH OIL [Concomitant]
     Dosage: 2000 MILLIGRAM DAILY;
     Route: 048
  3. FISH OIL [Concomitant]
     Dosage: 6000 MILLIGRAM DAILY;
     Route: 048

REACTIONS (1)
  - Blood triglycerides increased [Recovered/Resolved]
